FAERS Safety Report 8969359 (Version 2)
Quarter: 2013Q1

REPORT INFORMATION
  Report Type: Spontaneous
  Country: DE (occurrence: DE)
  Receive Date: 20121217
  Receipt Date: 20130123
  Transmission Date: 20140127
  Serious: Yes (Other)
  Sender: FDA-Public Use
  Company Number: DE-ROCHE-1165973

PATIENT
  Age: 79 Year
  Sex: Male
  Weight: 65 kg

DRUGS (5)
  1. MABTHERA [Suspect]
     Indication: PLASMACYTOMA
     Route: 042
     Dates: start: 20121205, end: 20121205
  2. FENISTIL (GERMANY) [Concomitant]
     Route: 042
     Dates: start: 20121205, end: 20121205
  3. RANITIDINE [Concomitant]
     Route: 042
     Dates: start: 20121205, end: 20121205
  4. PARACETAMOL [Concomitant]
     Route: 048
     Dates: start: 20121205, end: 20121205
  5. SOLU DACORTIN H [Concomitant]
     Route: 042
     Dates: start: 20121205, end: 20121205

REACTIONS (2)
  - Convulsion [Recovered/Resolved]
  - Loss of consciousness [Recovered/Resolved]
